FAERS Safety Report 11211390 (Version 4)
Quarter: 2016Q2

REPORT INFORMATION
  Report Type: Report from Study
  Country: US (occurrence: US)
  Receive Date: 20150623
  Receipt Date: 20160415
  Transmission Date: 20160815
  Serious: No
  Sender: FDA-Public Use
  Company Number: US-AMGEN-USASL2015059830

PATIENT
  Age: 79 Year
  Sex: Female

DRUGS (2)
  1. ENBREL [Suspect]
     Active Substance: ETANERCEPT
     Indication: RHEUMATOID ARTHRITIS
     Dosage: 50 MG, QWK (ONCE WEEKLY)
     Route: 065
     Dates: start: 20150430
  2. ENBREL [Suspect]
     Active Substance: ETANERCEPT
     Dosage: UNK
     Route: 065

REACTIONS (10)
  - Peripheral swelling [Unknown]
  - Fatigue [Not Recovered/Not Resolved]
  - Pain in extremity [Unknown]
  - Limb discomfort [Unknown]
  - Oral discomfort [Unknown]
  - Pain [Not Recovered/Not Resolved]
  - Joint swelling [Unknown]
  - Musculoskeletal stiffness [Unknown]
  - Arthralgia [Unknown]
  - Joint stiffness [Unknown]

NARRATIVE: CASE EVENT DATE: 2015
